FAERS Safety Report 8999808 (Version 2)
Quarter: 2013Q1

REPORT INFORMATION
  Report Type: Spontaneous
  Country: US (occurrence: US)
  Receive Date: 20130102
  Receipt Date: 20130115
  Transmission Date: 20140127
  Serious: Yes (Death)
  Sender: FDA-Public Use
  Company Number: US-009507513-1212USA010805

PATIENT
  Age: 59 Year
  Sex: Female

DRUGS (15)
  1. ZOLINZA [Suspect]
     Indication: PANCREATIC CARCINOMA
     Dosage: 300 MG, QD
     Route: 048
     Dates: start: 20121217, end: 201212
  2. ZOLINZA [Suspect]
     Indication: HEPATIC CANCER
  3. ZOLINZA [Suspect]
     Indication: METASTASIS
  4. AMLODIPINE [Concomitant]
  5. BENAZEPRIL [Concomitant]
  6. COMPAZINE [Concomitant]
  7. DIAZEPAM [Concomitant]
     Route: 048
  8. ESTRADIOL [Concomitant]
     Route: 048
  9. FENTANYL PATCH [Concomitant]
  10. IBUPROFEN [Concomitant]
  11. LORAZEPAM [Concomitant]
  12. METOPROLOL [Concomitant]
  13. OXYCODONE [Concomitant]
  14. SORAFENIB [Concomitant]
  15. ZOFRAN [Concomitant]

REACTIONS (1)
  - Death [Fatal]
